FAERS Safety Report 5201959-5 (Version None)
Quarter: 2007Q1

REPORT INFORMATION
  Report Type: 
  Country: None (occurrence: None)
  Receive Date: 20070104
  Receipt Date: 20070104
  Transmission Date: 20070707
  Serious: Yes (Hospitalization)
  Sender: FDA-Public Use
  Company Number: None

PATIENT
  Sex: Female
  Weight: 104 kg

DRUGS (5)
  1. CYCLOPHOSPHAMIDE [Suspect]
     Indication: ACUTE LYMPHOCYTIC LEUKAEMIA
     Dosage: 2580 MG
     Dates: end: 20061109
  2. DAUNORUBICIN HCL [Suspect]
     Dosage: 510 MG
     Dates: end: 20061111
  3. DEXAMETHASONE [Suspect]
     Dosage: 280 MG
     Dates: end: 20061129
  4. L-ASPARAGINASE [Suspect]
     Dosage: 26000 UNIT
     Dates: end: 20061116
  5. VINCRISTINE SULFATE [Suspect]
     Dosage: 3 MG
     Dates: end: 20061116

REACTIONS (20)
  - BLOOD BILIRUBIN ABNORMAL [None]
  - CEREBRAL INFARCTION [None]
  - CHEST PAIN [None]
  - CHEST X-RAY ABNORMAL [None]
  - CHORIORETINAL DISORDER [None]
  - CORNEAL LESION [None]
  - DYSPNOEA [None]
  - HYPOTENSION [None]
  - LUNG CONSOLIDATION [None]
  - LUNG DISORDER [None]
  - LUNG NEOPLASM [None]
  - MACULOPATHY [None]
  - MUSCULAR WEAKNESS [None]
  - PARAESTHESIA [None]
  - SEPSIS [None]
  - STAPHYLOCOCCAL INFECTION [None]
  - TACHYCARDIA [None]
  - THROMBOSIS [None]
  - VENTRICULAR DYSFUNCTION [None]
  - VISUAL ACUITY REDUCED [None]
